FAERS Safety Report 12907105 (Version 4)
Quarter: 2017Q3

REPORT INFORMATION
  Report Type: Spontaneous
  Country: KR (occurrence: KR)
  Receive Date: 20161103
  Receipt Date: 20170914
  Transmission Date: 20171127
  Serious: Yes (Hospitalization, Other)
  Sender: FDA-Public Use
  Company Number: KR-009507513-1610KOR014383

PATIENT
  Age: 76 Year
  Sex: Male
  Weight: 65.2 kg

DRUGS (7)
  1. ESMERON [Concomitant]
     Active Substance: ROCURONIUM BROMIDE
     Indication: MUSCLE RELAXANT THERAPY
     Dosage: 50 MG, UNK
     Route: 051
  2. ULTIVA [Concomitant]
     Active Substance: REMIFENTANIL HYDROCHLORIDE
     Indication: MAINTENANCE OF ANAESTHESIA
     Dosage: 0.1 MICROGRAM PER KILOGRAM PER MIN
     Route: 051
  3. BRIDION [Suspect]
     Active Substance: SUGAMMADEX
     Dosage: 130 MG, UNK
     Route: 051
  4. ESMERON [Concomitant]
     Active Substance: ROCURONIUM BROMIDE
     Indication: GENERAL ANAESTHESIA
     Dosage: 50 MG, UNK
     Route: 051
  5. ANEPOL [Concomitant]
     Indication: GENERAL ANAESTHESIA
     Dosage: 120 MG, UNK
  6. SUPRANE [Concomitant]
     Active Substance: DESFLURANE
     Indication: MAINTENANCE OF ANAESTHESIA
     Dosage: 6 VOLUME %
     Route: 051
  7. OXYGEN. [Concomitant]
     Active Substance: OXYGEN

REACTIONS (4)
  - Arteriospasm coronary [Recovered/Resolved]
  - Drug hypersensitivity [Unknown]
  - Arrhythmia [Recovered/Resolved]
  - Cardiac arrest [Recovered/Resolved]
